FAERS Safety Report 9145504 (Version 2)
Quarter: 2013Q2

REPORT INFORMATION
  Report Type: Spontaneous
  Country: SE (occurrence: SE)
  Receive Date: 20130307
  Receipt Date: 20130410
  Transmission Date: 20140414
  Serious: Yes (Death, Hospitalization)
  Sender: FDA-Public Use
  Company Number: SE-JNJFOC-20130300934

PATIENT
  Age: 71 Year
  Sex: Female

DRUGS (5)
  1. REMICADE [Suspect]
     Indication: RHEUMATOID ARTHRITIS
     Route: 042
     Dates: start: 20091103
  2. REMICADE [Suspect]
     Indication: RHEUMATOID ARTHRITIS
     Route: 042
     Dates: start: 20121211, end: 20121215
  3. METHOTREXATE [Suspect]
     Indication: RHEUMATOID ARTHRITIS
     Route: 065
     Dates: start: 20091103, end: 20121215
  4. PREDNISOLONE [Concomitant]
     Route: 065
     Dates: start: 20080526
  5. COX-1 ANTAGONIST [Concomitant]
     Route: 065
     Dates: start: 20080526

REACTIONS (5)
  - Myocardial infarction [Fatal]
  - Pneumonia [Fatal]
  - Renal failure [Unknown]
  - Pneumocystis jirovecii infection [Unknown]
  - Lung infiltration [Unknown]
